FAERS Safety Report 22752063 (Version 6)
Quarter: 2023Q4

REPORT INFORMATION
  Report Type: Report from Study
  Country: CN (occurrence: CN)
  Receive Date: 20230726
  Receipt Date: 20231129
  Transmission Date: 20240110
  Serious: Yes (Death, Life-Threatening, Hospitalization)
  Sender: FDA-Public Use
  Company Number: CN-PFIZER INC-PV202300125097

PATIENT
  Age: 71 Year
  Sex: Male
  Weight: 54 kg

DRUGS (8)
  1. IRINOTECAN HYDROCHLORIDE [Suspect]
     Active Substance: IRINOTECAN HYDROCHLORIDE
     Indication: Oesophageal carcinoma
     Dosage: 180 MG/M2(DOSE ADMINISTERED 294 MG), EVERY TWO WEEKS (QOW) ON DAY 1 OF EVERY 14-DAY
     Route: 042
     Dates: start: 20230531, end: 20230628
  2. ATROPINE SULFATE [Concomitant]
     Active Substance: ATROPINE SULFATE
     Dosage: UNK
     Dates: start: 20230614, end: 20230629
  3. DEXAMETHASONE SODIUM PHOSPHATE [Concomitant]
     Active Substance: DEXAMETHASONE PHOSPHATE\DEXAMETHASONE SODIUM PHOSPHATE
     Dosage: UNK
     Dates: start: 20230614, end: 20230629
  4. OMEPRAZOLE SODIUM [Concomitant]
     Active Substance: OMEPRAZOLE SODIUM
     Dosage: UNK
     Dates: start: 20230614, end: 20230614
  5. ONDANSETRON HYDROCHLORIDE [Concomitant]
     Active Substance: ONDANSETRON HYDROCHLORIDE
     Dosage: UNK
     Dates: start: 20230614, end: 20230614
  6. PALONOSETRON HYDROCHLORIDE [Concomitant]
     Active Substance: PALONOSETRON HYDROCHLORIDE
     Dosage: 0.25 MG
     Route: 042
     Dates: start: 20230627, end: 20230629
  7. LANSOPRAZOLE [Concomitant]
     Active Substance: LANSOPRAZOLE
     Dosage: 300 MG
     Route: 042
     Dates: start: 20230627, end: 20230629
  8. FU FANG AN JI SUAN ZHU SHE YE (14AA) [Concomitant]
     Dosage: UNK
     Route: 042
     Dates: start: 20230627, end: 20230629

REACTIONS (2)
  - Pneumonia bacterial [Not Recovered/Not Resolved]
  - Respiratory failure [Fatal]

NARRATIVE: CASE EVENT DATE: 20230630
